FAERS Safety Report 25307778 (Version 1)
Quarter: 2025Q2

REPORT INFORMATION
  Report Type: Spontaneous
  Country: DE (occurrence: DE)
  Receive Date: 20250513
  Receipt Date: 20250513
  Transmission Date: 20250716
  Serious: Yes (Congenital Anomaly)
  Sender: MYLAN
  Company Number: DE-EMB-M201900721-1

PATIENT
  Sex: Female
  Weight: 3.275 kg

DRUGS (32)
  1. CITALOPRAM [Suspect]
     Active Substance: CITALOPRAM
     Indication: Depression
     Dosage: 20 MILLIGRAM, QD
     Dates: start: 201804, end: 201902
  2. CITALOPRAM [Suspect]
     Active Substance: CITALOPRAM
     Dosage: 20 MILLIGRAM, QD
     Dates: start: 201804, end: 201902
  3. CITALOPRAM [Suspect]
     Active Substance: CITALOPRAM
     Dosage: 20 MILLIGRAM, QD
     Route: 064
     Dates: start: 201804, end: 201902
  4. CITALOPRAM [Suspect]
     Active Substance: CITALOPRAM
     Dosage: 20 MILLIGRAM, QD
     Route: 064
     Dates: start: 201804, end: 201902
  5. CITALOPRAM [Suspect]
     Active Substance: CITALOPRAM
     Dosage: 20 MILLIGRAM, QD
     Dates: start: 201804, end: 201902
  6. CITALOPRAM [Suspect]
     Active Substance: CITALOPRAM
     Dosage: 20 MILLIGRAM, QD
     Dates: start: 201804, end: 201902
  7. CITALOPRAM [Suspect]
     Active Substance: CITALOPRAM
     Dosage: 20 MILLIGRAM, QD
     Route: 064
     Dates: start: 201804, end: 201902
  8. CITALOPRAM [Suspect]
     Active Substance: CITALOPRAM
     Dosage: 20 MILLIGRAM, QD
     Route: 064
     Dates: start: 201804, end: 201902
  9. QUETIAPINE [Suspect]
     Active Substance: QUETIAPINE
     Indication: Depression
     Dosage: 200 MILLIGRAM, QD
     Dates: start: 201804, end: 201804
  10. QUETIAPINE [Suspect]
     Active Substance: QUETIAPINE
     Dosage: 200 MILLIGRAM, QD
     Dates: start: 201804, end: 201804
  11. QUETIAPINE [Suspect]
     Active Substance: QUETIAPINE
     Dosage: 200 MILLIGRAM, QD
     Route: 064
     Dates: start: 201804, end: 201804
  12. QUETIAPINE [Suspect]
     Active Substance: QUETIAPINE
     Dosage: 200 MILLIGRAM, QD
     Route: 064
     Dates: start: 201804, end: 201804
  13. QUETIAPINE [Suspect]
     Active Substance: QUETIAPINE
     Dosage: 200 MILLIGRAM, QD
     Dates: start: 201804, end: 201804
  14. QUETIAPINE [Suspect]
     Active Substance: QUETIAPINE
     Dosage: 200 MILLIGRAM, QD
     Dates: start: 201804, end: 201804
  15. QUETIAPINE [Suspect]
     Active Substance: QUETIAPINE
     Dosage: 200 MILLIGRAM, QD
     Route: 064
     Dates: start: 201804, end: 201804
  16. QUETIAPINE [Suspect]
     Active Substance: QUETIAPINE
     Dosage: 200 MILLIGRAM, QD
     Route: 064
     Dates: start: 201804, end: 201804
  17. VAXIGRIPTETRA [Concomitant]
     Active Substance: INFLUENZA VIRUS VACCINE QUADRIVALENT TYPE A+B
     Indication: Immunisation
     Dates: start: 201811, end: 201811
  18. VAXIGRIPTETRA [Concomitant]
     Active Substance: INFLUENZA VIRUS VACCINE QUADRIVALENT TYPE A+B
     Dates: start: 201811, end: 201811
  19. VAXIGRIPTETRA [Concomitant]
     Active Substance: INFLUENZA VIRUS VACCINE QUADRIVALENT TYPE A+B
     Route: 064
     Dates: start: 201811, end: 201811
  20. VAXIGRIPTETRA [Concomitant]
     Active Substance: INFLUENZA VIRUS VACCINE QUADRIVALENT TYPE A+B
     Route: 064
     Dates: start: 201811, end: 201811
  21. VAXIGRIPTETRA [Concomitant]
     Active Substance: INFLUENZA VIRUS VACCINE QUADRIVALENT TYPE A+B
     Dates: start: 201811, end: 201811
  22. VAXIGRIPTETRA [Concomitant]
     Active Substance: INFLUENZA VIRUS VACCINE QUADRIVALENT TYPE A+B
     Dates: start: 201811, end: 201811
  23. VAXIGRIPTETRA [Concomitant]
     Active Substance: INFLUENZA VIRUS VACCINE QUADRIVALENT TYPE A+B
     Route: 064
     Dates: start: 201811, end: 201811
  24. VAXIGRIPTETRA [Concomitant]
     Active Substance: INFLUENZA VIRUS VACCINE QUADRIVALENT TYPE A+B
     Route: 064
     Dates: start: 201811, end: 201811
  25. CYTOTEC [Concomitant]
     Active Substance: MISOPROSTOL
     Indication: Labour induction
     Dates: start: 201902, end: 201902
  26. CYTOTEC [Concomitant]
     Active Substance: MISOPROSTOL
     Dates: start: 201902, end: 201902
  27. CYTOTEC [Concomitant]
     Active Substance: MISOPROSTOL
     Route: 064
     Dates: start: 201902, end: 201902
  28. CYTOTEC [Concomitant]
     Active Substance: MISOPROSTOL
     Route: 064
     Dates: start: 201902, end: 201902
  29. CYTOTEC [Concomitant]
     Active Substance: MISOPROSTOL
     Dates: start: 201902, end: 201902
  30. CYTOTEC [Concomitant]
     Active Substance: MISOPROSTOL
     Dates: start: 201902, end: 201902
  31. CYTOTEC [Concomitant]
     Active Substance: MISOPROSTOL
     Route: 064
     Dates: start: 201902, end: 201902
  32. CYTOTEC [Concomitant]
     Active Substance: MISOPROSTOL
     Route: 064
     Dates: start: 201902, end: 201902

REACTIONS (2)
  - Developmental hip dysplasia [Recovering/Resolving]
  - Foetal exposure during pregnancy [Unknown]
